FAERS Safety Report 16725701 (Version 1)
Quarter: 2020Q3

REPORT INFORMATION
  Report Type: Report from Study
  Country: US (occurrence: US)
  Receive Date: 20190821
  Receipt Date: 20190821
  Transmission Date: 20201105
  Serious: Yes (Other)
  Sender: FDA-Public Use
  Company Number: US-JNJFOC-20190823969

PATIENT
  Age: 69 Year
  Sex: Female

DRUGS (11)
  1. VENETOCLAX. [Suspect]
     Active Substance: VENETOCLAX
     Dosage: 400 MG, QD DAYS 1?28, CYCLES 4?6
     Route: 048
     Dates: start: 2019
  2. VENETOCLAX. [Suspect]
     Active Substance: VENETOCLAX
     Dosage: 100 MG, QD DAYS 15?21, CYCLE 3
     Route: 048
     Dates: start: 2019
  3. IBRUTINIB [Suspect]
     Active Substance: IBRUTINIB
     Indication: CHRONIC LYMPHOCYTIC LEUKAEMIA
     Dosage: 420 MG, QD ON DAYS 1?28, CYCLES 1?6
     Route: 048
     Dates: start: 20190321
  4. VENETOCLAX. [Suspect]
     Active Substance: VENETOCLAX
     Dosage: 50 MG, QD DAYS 8?14, CYCLE 3
     Route: 048
     Dates: start: 2019
  5. OBINUTUZUMAB. [Suspect]
     Active Substance: OBINUTUZUMAB
     Dosage: 900 MG, ON DAY 2, CYCLE 1
     Route: 042
     Dates: start: 2019
  6. OBINUTUZUMAB. [Suspect]
     Active Substance: OBINUTUZUMAB
     Dosage: 1000 MG, ON DAY 8 CYCLE 1, DAY 15 CYCLE 1, DAY 1, CYCLE 2?6
     Route: 042
     Dates: start: 2019
  7. VENETOCLAX. [Suspect]
     Active Substance: VENETOCLAX
     Dosage: 200 MG, QD DAYS 22?28, CYCLE 3
     Route: 048
     Dates: start: 2019
  8. IBRUTINIB [Suspect]
     Active Substance: IBRUTINIB
     Dosage: 420 MG, QD
     Route: 048
     Dates: start: 2019
  9. IBRUTINIB [Suspect]
     Active Substance: IBRUTINIB
     Dosage: 140 MG, QD
     Route: 048
     Dates: start: 201908
  10. OBINUTUZUMAB. [Suspect]
     Active Substance: OBINUTUZUMAB
     Indication: CHRONIC LYMPHOCYTIC LEUKAEMIA
     Dosage: 100 MG, ON DAY 1 CYCLE 1
     Route: 042
     Dates: start: 20190321
  11. VENETOCLAX. [Suspect]
     Active Substance: VENETOCLAX
     Indication: CHRONIC LYMPHOCYTIC LEUKAEMIA
     Dosage: 20 MG, QD DAYS 1?7 CYCLE 3
     Route: 048
     Dates: start: 2019

REACTIONS (1)
  - Platelet count decreased [Recovered/Resolved]

NARRATIVE: CASE EVENT DATE: 20190620
